FAERS Safety Report 20793611 (Version 1)
Quarter: 2022Q2

REPORT INFORMATION
  Report Type: Spontaneous
  Country: US (occurrence: US)
  Receive Date: 20220506
  Receipt Date: 20220506
  Transmission Date: 20220721
  Serious: No
  Sender: FDA-Public Use
  Company Number: US-MMM-Y2T3LRQU

PATIENT
  Age: 66 Year
  Sex: Female

DRUGS (1)
  1. LAMICTAL [Suspect]
     Active Substance: LAMOTRIGINE
     Indication: Bipolar disorder
     Dosage: LAMICTAL 200MG TABLETS TAKE 1 TABLET BY MOUTH EVERY EVENING IN ADDITION TO 150 MG TABLET IN THE MORN
     Dates: start: 198201

REACTIONS (4)
  - Depression [Not Recovered/Not Resolved]
  - Intentional product misuse [Not Recovered/Not Resolved]
  - Incorrect dose administered [Unknown]
  - Wrong technique in product usage process [Unknown]

NARRATIVE: CASE EVENT DATE: 20220426
